FAERS Safety Report 7111348-4 (Version None)
Quarter: 2010Q4

REPORT INFORMATION
  Report Type: 
  Country: None (occurrence: None)
  Receive Date: 20101118
  Receipt Date: 20101110
  Transmission Date: 20110411
  Serious: Yes (Death, Other)
  Sender: FDA-Public Use
  Company Number: IN-PFIZER INC-2010145676

PATIENT
  Age: 60 Year
  Sex: Male

DRUGS (1)
  1. DEPO-MEDROL [Suspect]
     Indication: OSTEOARTHRITIS
     Dosage: 2 ML, SINGLE
     Route: 031

REACTIONS (2)
  - CARDIAC DISORDER [None]
  - DEATH [None]
